FAERS Safety Report 20719970 (Version 3)
Quarter: 2022Q4

REPORT INFORMATION
  Report Type: Spontaneous
  Country: CH (occurrence: CH)
  Receive Date: 20220418
  Receipt Date: 20221110
  Transmission Date: 20230113
  Serious: Yes (Death, Other)
  Sender: FDA-Public Use
  Company Number: None

PATIENT
  Age: 49 Year
  Sex: Male

DRUGS (41)
  1. ANIDULAFUNGIN [Suspect]
     Active Substance: ANIDULAFUNGIN
     Dosage: 200 MG, DAILY
     Route: 041
     Dates: start: 20220309
  2. FLUCONAZOLE [Suspect]
     Active Substance: FLUCONAZOLE
     Dosage: 100 MG, DAILY
     Route: 041
     Dates: start: 20220308, end: 20220309
  3. LEVETIRACETAM [Suspect]
     Active Substance: LEVETIRACETAM
     Dosage: 500 MG, DAILY
     Route: 041
     Dates: start: 20220226, end: 20220313
  4. VANCOMYCIN [Suspect]
     Active Substance: VANCOMYCIN
     Dosage: 10.4 ML/H
     Route: 041
     Dates: start: 20220311
  5. NEXIUM [Suspect]
     Active Substance: ESOMEPRAZOLE MAGNESIUM
     Dosage: 20 MG, DAILY
     Route: 041
     Dates: start: 20220226
  6. VIMPAT [Suspect]
     Active Substance: LACOSAMIDE
     Dosage: 100 MG, 2X/DAY
     Route: 041
     Dates: start: 20220227
  7. CEFTRIAXONE [Suspect]
     Active Substance: CEFTRIAXONE
     Dosage: 1 G, 2X/DAY
     Route: 041
     Dates: start: 20220301, end: 20220303
  8. AMOXICILLIN\CLAVULANATE POTASSIUM [Suspect]
     Active Substance: AMOXICILLIN\CLAVULANATE POTASSIUM
     Dosage: 1200 MG, 2X/DAY
     Route: 041
     Dates: start: 20220226, end: 20220301
  9. HEPARIN SODIUM [Concomitant]
     Active Substance: HEPARIN SODIUM
     Dosage: UNK
     Route: 041
     Dates: start: 20220301
  10. PROPOFOL [Concomitant]
     Active Substance: PROPOFOL
     Dosage: UNK
     Route: 041
     Dates: start: 20220226
  11. POTASSIUM CHLORIDE [Concomitant]
     Active Substance: POTASSIUM CHLORIDE
     Dosage: UNK
     Route: 041
     Dates: start: 20220306
  12. INSULIN PORK\INSULIN PURIFIED PORK [Concomitant]
     Active Substance: INSULIN PORK\INSULIN PURIFIED PORK
     Dosage: UNK
     Route: 041
     Dates: start: 20220228
  13. ALBUMIN HUMAN [Concomitant]
     Active Substance: ALBUMIN HUMAN
     Dosage: 20 %
     Route: 042
     Dates: start: 20220304, end: 20220305
  14. ALBUMIN HUMAN [Concomitant]
     Active Substance: ALBUMIN HUMAN
     Dosage: 20 %
     Route: 042
     Dates: start: 20220312
  15. NOREPINEPHRINE [Concomitant]
     Active Substance: NOREPINEPHRINE
     Dosage: UNK
     Route: 041
     Dates: start: 20220226, end: 20220313
  16. SOLU-CORTEF [Concomitant]
     Active Substance: HYDROCORTISONE SODIUM SUCCINATE
     Dosage: UNK
     Route: 042
     Dates: start: 20220304, end: 20220313
  17. VITAMIN B6 [Concomitant]
     Active Substance: PYRIDOXINE HYDROCHLORIDE
     Dates: start: 20220226, end: 20220313
  18. CYANOCOBALAMIN\PYRIDOXINE\THIAMINE [Concomitant]
     Active Substance: CYANOCOBALAMIN\PYRIDOXINE\THIAMINE
     Dosage: UNK
     Route: 042
     Dates: start: 20220226, end: 20220312
  19. FOLIC ACID [Concomitant]
     Active Substance: FOLIC ACID
     Dosage: ROUTE OF ADMINISTRATION: ORAL THEN  IV
     Dates: start: 20220303, end: 20220311
  20. LACTITOL [Concomitant]
     Active Substance: LACTITOL
     Dosage: UNK
     Route: 048
     Dates: start: 20220226, end: 20220311
  21. VITAMIN K [Concomitant]
     Active Substance: PHYTONADIONE
     Dosage: UNK
     Route: 042
     Dates: start: 20220226, end: 20220302
  22. VITAMIN K [Concomitant]
     Active Substance: PHYTONADIONE
     Dosage: UNK
     Route: 042
     Dates: start: 20220305, end: 20220311
  23. FENTANYL [Concomitant]
     Active Substance: FENTANYL
     Dosage: UNK
     Route: 041
     Dates: start: 20220304, end: 20220310
  24. FENTANYL [Concomitant]
     Active Substance: FENTANYL
     Dosage: UNK
     Route: 041
     Dates: start: 20220226
  25. CLONAZEPAM [Concomitant]
     Active Substance: CLONAZEPAM
     Dosage: UNK
     Route: 041
     Dates: start: 20220226, end: 20220310
  26. HYDROCHLOROTHIAZIDE [Concomitant]
     Active Substance: HYDROCHLOROTHIAZIDE
     Dosage: UNK
     Route: 048
     Dates: start: 20220308, end: 20220309
  27. MIDAZOLAM [Concomitant]
     Active Substance: MIDAZOLAM
     Dosage: UNK
     Route: 041
     Dates: start: 20220226, end: 20220226
  28. MIDAZOLAM [Concomitant]
     Active Substance: MIDAZOLAM
     Dosage: UNK
     Route: 041
     Dates: start: 20220307, end: 20220307
  29. SODIUM PHOSPHATE [Concomitant]
     Active Substance: SODIUM PHOSPHATE
     Dosage: UNK
     Route: 042
     Dates: start: 20220307, end: 20220307
  30. DEXMEDETOMIDINE [Concomitant]
     Active Substance: DEXMEDETOMIDINE
     Dosage: UNK
     Route: 042
     Dates: start: 20220226, end: 20220304
  31. METHADONE [Concomitant]
     Active Substance: METHADONE HYDROCHLORIDE
     Dosage: UNK
     Route: 048
     Dates: start: 20220301, end: 20220304
  32. ALDACTONE [Concomitant]
     Active Substance: SPIRONOLACTONE
     Dosage: UNK
     Route: 048
     Dates: start: 20220304
  33. SODIUM PICOSULFATE [Concomitant]
     Active Substance: SODIUM PICOSULFATE
     Dosage: UNK
     Route: 048
     Dates: start: 20220304, end: 20220304
  34. MAGNESIUM [Concomitant]
     Active Substance: MAGNESIUM
     Dosage: UNK
     Route: 048
     Dates: start: 20220226, end: 20220226
  35. MAGNESIUM [Concomitant]
     Active Substance: MAGNESIUM
     Dosage: UNK
     Route: 042
     Dates: start: 20220304, end: 20220304
  36. POLYETHYLENE GLYCOLS [Concomitant]
     Active Substance: POLYETHYLENE GLYCOLS
     Dosage: UNK
     Route: 048
     Dates: start: 20220304, end: 20220304
  37. ACETAMINOPHEN [Concomitant]
     Active Substance: ACETAMINOPHEN
     Dosage: UNK
     Route: 048
     Dates: start: 20220228, end: 20220302
  38. NICARDIPINE [Concomitant]
     Active Substance: NICARDIPINE
     Dosage: UNK
     Route: 041
     Dates: start: 20220228, end: 20220228
  39. ACETAZOLAMIDE [Concomitant]
     Active Substance: ACETAZOLAMIDE
     Dosage: UNK
     Route: 042
     Dates: start: 20220227, end: 20220227
  40. PROPRANOLOL [Concomitant]
     Active Substance: PROPRANOLOL HYDROCHLORIDE
     Dosage: UNK
     Route: 042
     Dates: start: 20220226, end: 20220226
  41. LORAZEPAM [Concomitant]
     Active Substance: LORAZEPAM
     Dosage: UNK
     Route: 048
     Dates: start: 20220226, end: 20220226

REACTIONS (6)
  - Death [Fatal]
  - Hepatic enzyme increased [Not Recovered/Not Resolved]
  - Jaundice [Not Recovered/Not Resolved]
  - Hyperbilirubinaemia [Not Recovered/Not Resolved]
  - Blood alkaline phosphatase increased [Not Recovered/Not Resolved]
  - Nervous system disorder [Unknown]

NARRATIVE: CASE EVENT DATE: 20220309
